FAERS Safety Report 25522330 (Version 1)
Quarter: 2025Q3

REPORT INFORMATION
  Report Type: Spontaneous
  Country: GB (occurrence: GB)
  Receive Date: 20250707
  Receipt Date: 20250707
  Transmission Date: 20251020
  Serious: Yes (Other)
  Sender: DEXCEL LTD.
  Company Number: None

PATIENT
  Age: 47 Year
  Sex: Male
  Weight: 131 kg

DRUGS (3)
  1. OMEPRAZOLE [Suspect]
     Active Substance: OMEPRAZOLE
     Indication: Metabolic surgery
     Dosage: 20 MG ONCE DAILY, (CPDR)
     Dates: start: 20250514
  2. Avapro 150 mgAVAPRO (Specific MP Group PGR5423110) [Concomitant]
     Indication: Hypertension
  3. SYNTHROID 175 mcgSYNTHROID (Specific MP Group PGR5426907) [Concomitant]
     Indication: Hypothyroidism

REACTIONS (2)
  - Bradycardia [Recovering/Resolving]
  - Off label use [Unknown]

NARRATIVE: CASE EVENT DATE: 20250514
